FAERS Safety Report 4302573-6 (Version None)
Quarter: 2004Q1

REPORT INFORMATION
  Report Type: 
  Country: None (occurrence: None)
  Receive Date: 20040224
  Receipt Date: 20040219
  Transmission Date: 20041129
  Serious: Yes (Other)
  Sender: FDA-Public Use
  Company Number: 200411281US

PATIENT
  Age: 64 Year
  Sex: Female

DRUGS (2)
  1. LANTUS [Suspect]
     Dosage: DOSE: NOT PROVIDED
     Dates: start: 20000101
  2. INSULIN PORK [Concomitant]
     Dosage: DOSE: NOT PROVIDED

REACTIONS (4)
  - CEREBROVASCULAR ACCIDENT [None]
  - FACIAL PALSY [None]
  - FALL [None]
  - IMMOBILE [None]
